FAERS Safety Report 7275028-7 (Version None)
Quarter: 2011Q1

REPORT INFORMATION
  Report Type: 
  Country: None (occurrence: None)
  Receive Date: 20110204
  Receipt Date: 20110127
  Transmission Date: 20110831
  Serious: Yes (Death, Hospitalization, Other)
  Sender: FDA-Public Use
  Company Number: JP-ROCHE-741926

PATIENT
  Sex: Male

DRUGS (20)
  1. CAPECITABINE [Suspect]
     Dosage: IT IS ONE ADMINISTERING WEEKLY HOLIDAY MEDICINE FOR TWO WEEKS.
     Route: 048
     Dates: start: 20100825, end: 20100907
  2. OXALIPLATIN [Suspect]
     Route: 041
     Dates: start: 20100708, end: 20100708
  3. OXALIPLATIN [Suspect]
     Route: 041
     Dates: start: 20100802, end: 20100802
  4. FERROUS CITRATE [Concomitant]
     Dosage: PREORAL AGENT
     Route: 048
     Dates: start: 20100829, end: 20101017
  5. DECADRON [Concomitant]
     Dosage: IT IS TWO DAYS FROM THE ELPLAT ADMINISTERING THE MORROW.
     Route: 048
     Dates: start: 20100610, end: 20100827
  6. FLOMOX [Concomitant]
     Dosage: PERORAL AGENT
     Route: 048
     Dates: start: 20100729, end: 20100802
  7. OXALIPLATIN [Suspect]
     Indication: COLON CANCER METASTATIC
     Route: 041
     Dates: start: 20100609, end: 20100609
  8. PYDOXAL [Concomitant]
     Route: 048
     Dates: start: 20100609, end: 20101027
  9. CAPECITABINE [Suspect]
     Dosage: IT IS ONE ADMINISTERING WEEKLY HOLIDAY MEDICINE FOR TWO WEEKS.
     Route: 048
     Dates: start: 20100708, end: 20100721
  10. OXALIPLATIN [Suspect]
     Route: 041
     Dates: start: 20100927, end: 20100927
  11. CAPECITABINE [Suspect]
     Indication: COLON CANCER METASTATIC
     Dosage: DRUG REPORTED: XELODA 300 (CAPECITABE). IT WAS 1 ADMINISTERING WEEKLY HOLIDAY MEDICINE FOR TWO WEEK.
     Route: 048
     Dates: start: 20100609, end: 20100622
  12. MAGMITT [Concomitant]
     Route: 048
     Dates: start: 20100610, end: 20101027
  13. DAI-KENCHU-TO [Concomitant]
     Route: 048
     Dates: start: 20100610, end: 20100616
  14. IBRUPROFEN [Concomitant]
     Dosage: PERORAL AGENT
     Route: 048
     Dates: start: 20100629, end: 20100802
  15. ADONA [Concomitant]
     Dosage: PREORAL AGENT
     Route: 048
     Dates: start: 20100929, end: 20101006
  16. TRANSAMIN [Concomitant]
     Route: 048
     Dates: start: 20100929, end: 20101006
  17. CAPECITABINE [Suspect]
     Route: 048
     Dates: start: 20100802, end: 20100815
  18. OXALIPLATIN [Suspect]
     Route: 041
     Dates: start: 20100825, end: 20100825
  19. CAPECITABINE [Suspect]
     Dosage: IT IS ONE ADMINISTERING WEEKLY HOLIDAY MEDICINE FOR TWO WEEKS.
     Route: 048
     Dates: start: 20100927, end: 20101010
  20. HIRUDOID [Concomitant]
     Dosage: ...UNCERTAIN DOSAGE.. PROPERLY
     Route: 003
     Dates: start: 20100609, end: 20101027

REACTIONS (5)
  - HAEMORRHAGE [None]
  - SHOCK [None]
  - GASTROINTESTINAL PERFORATION [None]
  - ANAEMIA [None]
  - PLATELET COUNT DECREASED [None]
